FAERS Safety Report 15668937 (Version 4)
Quarter: 2019Q3

REPORT INFORMATION
  Report Type: Report from Study
  Country: DE (occurrence: DE)
  Receive Date: 20181129
  Receipt Date: 20190826
  Transmission Date: 20191004
  Serious: No
  Sender: FDA-Public Use
  Company Number: DE-ROCHE-2222324

PATIENT
  Age: 34 Year
  Sex: Female
  Weight: 69 kg

DRUGS (14)
  1. OCRELIZUMAB. [Suspect]
     Active Substance: OCRELIZUMAB
     Indication: MULTIPLE SCLEROSIS
     Dosage: DATE OF MOST RECENT DOSE: 19/JUN/2018
     Route: 042
     Dates: start: 20180605
  2. IBUPROFEN. [Concomitant]
     Active Substance: IBUPROFEN
     Indication: MYALGIA
     Route: 048
     Dates: start: 20180828
  3. FENISTIL [Concomitant]
     Active Substance: DIMETHINDENE
     Route: 042
     Dates: start: 20180605, end: 20180605
  4. PREDNISOLON [PREDNISOLONE] [Concomitant]
     Active Substance: PREDNISOLONE
     Route: 048
     Dates: start: 20190107
  5. METHYPRED [Concomitant]
     Indication: PREMEDICATION
     Route: 042
     Dates: start: 20180605, end: 20180605
  6. FRAGMIN [Concomitant]
     Active Substance: DALTEPARIN SODIUM
     Indication: THROMBOSIS PROPHYLAXIS
     Route: 058
     Dates: start: 20190529, end: 20190529
  7. METHYPRED [Concomitant]
     Indication: PREMEDICATION
     Route: 042
     Dates: start: 20180619, end: 20180619
  8. PANTOPRAZOL [PANTOPRAZOLE] [Concomitant]
     Active Substance: PANTOPRAZOLE
     Indication: CHRONIC GASTRITIS
     Route: 048
     Dates: start: 20181015
  9. PREDNIFLUID [Concomitant]
     Route: 047
     Dates: start: 20190308
  10. FENISTIL [Concomitant]
     Active Substance: DIMETHINDENE
     Indication: PREMEDICATION
     Route: 042
     Dates: start: 20180619, end: 20180619
  11. PREDNIFLUID [Concomitant]
     Indication: UVEITIS
     Route: 047
     Dates: start: 20181122
  12. RABIPUR [Concomitant]
     Active Substance: RABIES VIRUS STRAIN FLURY LEP ANTIGEN (PROPIOLACTONE INACTIVATED)
     Route: 030
     Dates: start: 20190124, end: 20190221
  13. ZYKLOLAT [Concomitant]
     Route: 047
     Dates: start: 20181212
  14. TYPHIM VI [Concomitant]
     Active Substance: SALMONELLA TYPHI TY2 VI POLYSACCHARIDE ANTIGEN
     Indication: IMMUNISATION
     Route: 030
     Dates: start: 20190131, end: 20190131

REACTIONS (1)
  - Helicobacter infection [Recovered/Resolved]

NARRATIVE: CASE EVENT DATE: 20181018
